FAERS Safety Report 12675929 (Version 1)
Quarter: 2016Q3

REPORT INFORMATION
  Report Type: Spontaneous
  Country: US (occurrence: None)
  Receive Date: 20160822
  Receipt Date: 20160822
  Transmission Date: 20161109
  Serious: Yes (Life-Threatening, Hospitalization, Disabling, Other)
  Sender: FDA-Public Use
  Company Number: None

PATIENT
  Sex: Male
  Weight: 71.22 kg

DRUGS (1)
  1. RITUXIMAB BIOGEN, GENTECH [Suspect]
     Active Substance: RITUXIMAB
     Indication: CHRONIC LYMPHOCYTIC LEUKAEMIA
     Dosage: INTO A VEIN
     Route: 042

REACTIONS (2)
  - Central nervous system lesion [None]
  - Progressive multifocal leukoencephalopathy [None]
